FAERS Safety Report 6190196-6 (Version None)
Quarter: 2009Q2

REPORT INFORMATION
  Report Type: 
  Country: None (occurrence: None)
  Receive Date: 20090427
  Receipt Date: 20080328
  Transmission Date: 20091009
  Serious: Yes (Disabling, Other)
  Sender: FDA-Public Use
  Company Number: WAES 0803USA04997

PATIENT
  Age: 12 Year
  Sex: Male
  Weight: 55.7924 kg

DRUGS (4)
  1. SINGULAIR [Suspect]
     Indication: ASTHMA
     Dosage: 5 MG/DAILY/PO
     Route: 048
     Dates: start: 20010307, end: 20080328
  2. SINGULAIR [Suspect]
     Indication: HYPERSENSITIVITY
     Dosage: 5 MG/DAILY/PO
     Route: 048
     Dates: start: 20010307, end: 20080328
  3. CLARITIN [Concomitant]
  4. ALBUTEROL [Concomitant]

REACTIONS (3)
  - ANXIETY [None]
  - DEPRESSION [None]
  - INSOMNIA [None]
